FAERS Safety Report 6197641-0 (Version None)
Quarter: 2009Q2

REPORT INFORMATION
  Report Type: 
  Country: None (occurrence: None)
  Receive Date: 20090521
  Receipt Date: 20090515
  Transmission Date: 20091009
  Serious: Yes (Hospitalization)
  Sender: FDA-Public Use
  Company Number: FR-ASTRAZENECA-2009CG00972

PATIENT
  Age: 60 Year
  Sex: Male

DRUGS (3)
  1. CRESTOR [Suspect]
     Indication: HYPERCHOLESTEROLAEMIA
     Route: 048
     Dates: start: 20070913, end: 20090301
  2. NEXIUM [Concomitant]
     Indication: DUODENITIS
     Route: 048
  3. TEMERIT [Concomitant]
     Indication: HYPERTENSION

REACTIONS (1)
  - PANCREATITIS CHRONIC [None]
